FAERS Safety Report 7241883-X (Version None)
Quarter: 2011Q1

REPORT INFORMATION
  Report Type: 
  Country: None (occurrence: None)
  Receive Date: 20110114
  Receipt Date: 20110105
  Transmission Date: 20110831
  Serious: Yes (Death, Hospitalization)
  Sender: FDA-Public Use
  Company Number: TPA2010A05641

PATIENT
  Age: 70 Year
  Sex: Male

DRUGS (3)
  1. METFORMIN HCL [Concomitant]
  2. HYTACAND (HYDROCHLOROTHIAZIDE, CANDESARTAN CILEXETIL) [Concomitant]
  3. ADENURIC (FEBUXOSTAT) [Suspect]
     Indication: HYPERURICAEMIA
     Dosage: 80 MG (80 MG, 1 IN 1 D) PER ORAL
     Route: 048
     Dates: start: 20100916, end: 20100928

REACTIONS (2)
  - COMA [None]
  - ISCHAEMIC STROKE [None]
